FAERS Safety Report 6691567-1 (Version None)
Quarter: 2010Q2

REPORT INFORMATION
  Report Type: 
  Country: None (occurrence: None)
  Receive Date: 20100422
  Receipt Date: 20100414
  Transmission Date: 20101027
  Serious: Yes (Hospitalization)
  Sender: FDA-Public Use
  Company Number: NL-TEVA-231484ISR

PATIENT
  Sex: Male
  Weight: 112 kg

DRUGS (1)
  1. ACYCLOVIR SODIUM [Suspect]
     Indication: HERPES OPHTHALMIC
     Dates: start: 20100201

REACTIONS (1)
  - ATRIAL FIBRILLATION [None]
